FAERS Safety Report 8288172-2 (Version None)
Quarter: 2012Q2

REPORT INFORMATION
  Report Type: 
  Country: None (occurrence: None)
  Receive Date: 20120416
  Receipt Date: 20120413
  Transmission Date: 20120825
  Serious: Yes (Other)
  Sender: FDA-Public Use
  Company Number: DK-BAYER-2012-035952

PATIENT
  Age: 40 Year
  Sex: Male

DRUGS (3)
  1. NITROGLYCERIN [Concomitant]
     Indication: PREMEDICATION
     Dates: start: 20120312, end: 20120312
  2. ULTRAVIST 150 [Suspect]
     Indication: SCAN WITH CONTRAST
     Dosage: 65 ML, ONCE
     Route: 042
     Dates: start: 20120312, end: 20120312
  3. ULTRAVIST 150 [Suspect]
     Indication: COMPUTERISED TOMOGRAM

REACTIONS (1)
  - BLISTER [None]
